FAERS Safety Report 4704736-4 (Version None)
Quarter: 2005Q2

REPORT INFORMATION
  Report Type: 
  Country: None (occurrence: None)
  Receive Date: 20050630
  Receipt Date: 20050616
  Transmission Date: 20051028
  Serious: Yes (Other)
  Sender: FDA-Public Use
  Company Number: 2005081822

PATIENT
  Age: 80 Year
  Sex: Male

DRUGS (6)
  1. VIAGRA [Suspect]
     Indication: ERECTILE DYSFUNCTION
     Dosage: 50 MG (50 MG, UNKNOWN), ORAL
     Route: 048
     Dates: start: 20030617, end: 20040220
  2. PRINIVIL [Concomitant]
  3. COUMADIN [Concomitant]
  4. LASIX [Concomitant]
  5. LOPRESSOR [Concomitant]
  6. ASPIRIN [Concomitant]

REACTIONS (3)
  - BLINDNESS [None]
  - CYANOPSIA [None]
  - OPTIC ISCHAEMIC NEUROPATHY [None]
